FAERS Safety Report 9611226 (Version 2)
Quarter: 2013Q4

REPORT INFORMATION
  Report Type: Spontaneous
  Country: US (occurrence: US)
  Receive Date: 20131009
  Receipt Date: 20131105
  Transmission Date: 20140711
  Serious: Yes (Other)
  Sender: FDA-Public Use
  Company Number: US-JNJFOC-20131004242

PATIENT
  Age: 54 Year
  Sex: Male
  Weight: 106 kg

DRUGS (17)
  1. AMLODIPINE BESILATE [Concomitant]
     Indication: HYPERTENSION
     Route: 065
  2. OMEPRAZOLE [Concomitant]
     Indication: GASTROOESOPHAGEAL REFLUX DISEASE
     Route: 065
  3. GABAPENTIN [Concomitant]
     Indication: CONVULSION
     Route: 065
  4. HYDROCODONE W/ ACETAMINOPHEN [Concomitant]
     Indication: PROCEDURAL PAIN
     Route: 048
  5. TAMSULOSIN [Concomitant]
     Indication: PRODUCT USED FOR UNKNOWN INDICATION
     Route: 065
  6. LAMOTRIGINE [Concomitant]
     Indication: CONVULSION
     Route: 065
  7. ATORVASTATIN CALCIUM [Concomitant]
     Indication: HYPERTENSION
     Route: 065
  8. VIMPAT [Concomitant]
     Indication: CONVULSION
     Route: 065
  9. LEXAPRO [Concomitant]
     Indication: DEPRESSION
     Route: 065
  10. LYRICA [Concomitant]
     Indication: PAIN
     Route: 065
  11. NORTRIPTYLINE [Concomitant]
     Indication: SLEEP DISORDER
     Route: 065
  12. TIZANIDINE [Concomitant]
     Indication: PROCEDURAL PAIN
     Route: 065
  13. PRIMIDONE [Concomitant]
     Indication: CONVULSION
     Route: 065
  14. MAXALT [Concomitant]
     Indication: CLUSTER HEADACHE
     Route: 065
  15. BUTALBITAL/ACETAMINOPHEN/CAFFEINE AND CODEINE PHOSPHATE [Concomitant]
     Indication: EYE PAIN
     Route: 065
  16. NICOTROL NASAL SPRAY [Suspect]
     Indication: SMOKING CESSATION THERAPY
     Route: 045
     Dates: start: 2013, end: 20130930
  17. LEVETIRACETAM [Concomitant]
     Indication: CONVULSION
     Route: 065

REACTIONS (2)
  - Eye haemorrhage [Unknown]
  - Renal failure [Unknown]
